FAERS Safety Report 15558352 (Version 1)
Quarter: 2018Q4

REPORT INFORMATION
  Report Type: Other
  Country: DE (occurrence: DE)
  Receive Date: 20181028
  Receipt Date: 20181028
  Transmission Date: 20190205
  Serious: Yes (Other)
  Sender: FDA-Public Use
  Company Number: DE-DEXPHARM-20180819

PATIENT
  Age: 22 Year
  Sex: Female

DRUGS (8)
  1. TORASEMIDE [Suspect]
     Active Substance: TORSEMIDE
  2. TACROLIMUS. [Suspect]
     Active Substance: TACROLIMUS
  3. PREDNISOLONE. [Suspect]
     Active Substance: PREDNISOLONE
     Dosage: UNK UNK, UNKNOWN FREQ. (0-8 GW)
  4. OMEPRAZOLE. [Suspect]
     Active Substance: OMEPRAZOLE
     Route: 048
  5. FUROSEMIDE. [Suspect]
     Active Substance: FUROSEMIDE
  6. FLUVASTATIN [Suspect]
     Active Substance: FLUVASTATIN SODIUM
  7. RAMIPRIL. [Suspect]
     Active Substance: RAMIPRIL
     Indication: HYPERTENSION
     Route: 048
  8. COLECALCIFEROL [Suspect]
     Active Substance: CHOLECALCIFEROL

REACTIONS (2)
  - Premature baby [Unknown]
  - Exposure during pregnancy [Unknown]
